FAERS Safety Report 16221264 (Version 1)
Quarter: 2019Q2

REPORT INFORMATION
  Report Type: Spontaneous
  Country: US (occurrence: US)
  Receive Date: 20190422
  Receipt Date: 20190422
  Transmission Date: 20190711
  Serious: No
  Sender: FDA-Public Use
  Company Number: US-AUROBINDO-AUR-APL-2019-014692

PATIENT

DRUGS (2)
  1. ZIPRASIDONE HYDROCHLORIDE 40MG [Suspect]
     Active Substance: ZIPRASIDONE HYDROCHLORIDE
     Indication: PRODUCT USED FOR UNKNOWN INDICATION
     Dosage: 40 MILLIGRAM, ONCE A DAY, AT NOON TIME
     Route: 065
  2. ZIPRASIDONE HYDROCHLORIDE 40MG [Suspect]
     Active Substance: ZIPRASIDONE HYDROCHLORIDE
     Dosage: 60 MILLIGRAM, TWO TIMES A DAY, IN THE EVENING
     Route: 065

REACTIONS (4)
  - Suspected product quality issue [Unknown]
  - Anxiety [Recovered/Resolved]
  - Fatigue [Recovered/Resolved]
  - Condition aggravated [Recovered/Resolved]
